FAERS Safety Report 16508392 (Version 3)
Quarter: 2019Q3

REPORT INFORMATION
  Report Type: Spontaneous
  Country: TR (occurrence: TR)
  Receive Date: 20190701
  Receipt Date: 20190711
  Transmission Date: 20191004
  Serious: Yes (Hospitalization, Other)
  Sender: FDA-Public Use
  Company Number: TR-PFIZER INC-2019277528

PATIENT
  Age: 70 Year
  Sex: Female

DRUGS (3)
  1. BISOPROLOL [Suspect]
     Active Substance: BISOPROLOL
     Indication: HYPERTENSION
     Dosage: UNK
  2. WARFARIN SODIUM. [Suspect]
     Active Substance: WARFARIN SODIUM
     Indication: ATRIAL FIBRILLATION
     Dosage: UNK
  3. RAMIPRIL. [Suspect]
     Active Substance: RAMIPRIL
     Indication: HYPERTENSION
     Dosage: UNK

REACTIONS (8)
  - Dizziness [Unknown]
  - Prothrombin time prolonged [Unknown]
  - Arrhythmia [Unknown]
  - Purpura [Recovering/Resolving]
  - Dermatitis bullous [Recovering/Resolving]
  - International normalised ratio increased [Recovered/Resolved]
  - Anaemia [Unknown]
  - Epistaxis [Unknown]
